FAERS Safety Report 9171248 (Version 1)
Quarter: 2013Q1

REPORT INFORMATION
  Report Type: Spontaneous
  Country: BR (occurrence: BR)
  Receive Date: 20130319
  Receipt Date: 20130319
  Transmission Date: 20140127
  Serious: Yes (Death)
  Sender: FDA-Public Use
  Company Number: BR-PFIZER INC-2013088778

PATIENT
  Age: 86 Year
  Sex: Male
  Weight: 50 kg

DRUGS (1)
  1. LIPITOR [Suspect]
     Dosage: 40 MG (ONE TABLET), DAILY
     Route: 048
     Dates: start: 20081228, end: 201212

REACTIONS (1)
  - Pulmonary infarction [Fatal]
